FAERS Safety Report 9467831 (Version 1)
Quarter: 2013Q3

REPORT INFORMATION
  Report Type: Spontaneous
  Country: US (occurrence: US)
  Receive Date: 20130821
  Receipt Date: 20130821
  Transmission Date: 20140515
  Serious: No
  Sender: FDA-Public Use
  Company Number: US-B.I. PHARMACEUTICALS,INC./RIDGEFIELD-2013-BI-25061BP

PATIENT
  Sex: Female

DRUGS (4)
  1. TRADJENTA [Suspect]
     Indication: TYPE 2 DIABETES MELLITUS
     Dosage: 5 MG
     Route: 048
     Dates: start: 2013, end: 2013
  2. METFORMIN [Concomitant]
  3. ZOCOR [Concomitant]
  4. ACIFEX [Concomitant]

REACTIONS (2)
  - Stomatitis [Recovered/Resolved]
  - Tongue haemorrhage [Recovered/Resolved]
